FAERS Safety Report 17499295 (Version 2)
Quarter: 2020Q1

REPORT INFORMATION
  Report Type: Spontaneous
  Country: CA (occurrence: CA)
  Receive Date: 20200305
  Receipt Date: 20200305
  Transmission Date: 20200409
  Serious: Yes (Other)
  Sender: FDA-Public Use
  Company Number: CA-ORION CORPORATION ORION PHARMA-TREX2020-1187

PATIENT
  Sex: Female

DRUGS (7)
  1. AZATHIOPRINE. [Suspect]
     Active Substance: AZATHIOPRINE
     Indication: AUTOINFLAMMATORY DISEASE
     Route: 065
  2. HYDROXYCHLOROQUINE SULFATE. [Suspect]
     Active Substance: HYDROXYCHLOROQUINE SULFATE
     Indication: AUTOINFLAMMATORY DISEASE
     Route: 065
  3. ORENCIA [Suspect]
     Active Substance: ABATACEPT
     Indication: AUTOINFLAMMATORY DISEASE
     Route: 065
  4. MYCOPHENOLATE MOFETIL. [Suspect]
     Active Substance: MYCOPHENOLATE MOFETIL
     Indication: AUTOINFLAMMATORY DISEASE
     Route: 065
  5. ANAKINRA [Suspect]
     Active Substance: ANAKINRA
     Indication: AUTOINFLAMMATORY DISEASE
     Route: 065
  6. PREDNISONE. [Suspect]
     Active Substance: PREDNISONE
     Indication: AUTOINFLAMMATORY DISEASE
     Route: 065
  7. METHOTREXATE (TRADE NAME UNKNOWN) [Suspect]
     Active Substance: METHOTREXATE
     Indication: AUTOINFLAMMATORY DISEASE
     Route: 065

REACTIONS (10)
  - Myositis [Not Recovered/Not Resolved]
  - Pruritus [Not Recovered/Not Resolved]
  - Fatigue [Not Recovered/Not Resolved]
  - Urticaria [Not Recovered/Not Resolved]
  - Exfoliative rash [Not Recovered/Not Resolved]
  - Arthralgia [Not Recovered/Not Resolved]
  - Hepatitis [Not Recovered/Not Resolved]
  - Visual impairment [Not Recovered/Not Resolved]
  - Pyrexia [Not Recovered/Not Resolved]
  - Swelling [Not Recovered/Not Resolved]
